FAERS Safety Report 4513394-3 (Version None)
Quarter: 2004Q4

REPORT INFORMATION
  Report Type: 
  Country: None (occurrence: None)
  Receive Date: 20041130
  Receipt Date: 20040909
  Transmission Date: 20050328
  Serious: No
  Sender: FDA-Public Use
  Company Number: US-BRISTOL-MYERS SQUIBB COMPANY-12697678

PATIENT
  Age: 47 Year
  Sex: Female
  Weight: 88 kg

DRUGS (3)
  1. ERBITUX [Suspect]
     Dosage: 2MG PER ML, 50 ML VIAL
  2. FLOVENT [Concomitant]
  3. ALBUTEROL [Concomitant]

REACTIONS (2)
  - ACCIDENTAL EXPOSURE [None]
  - PRURITUS [None]
